FAERS Safety Report 16747927 (Version 1)
Quarter: 2019Q3

REPORT INFORMATION
  Report Type: Spontaneous
  Country: AU (occurrence: AU)
  Receive Date: 20190827
  Receipt Date: 20190827
  Transmission Date: 20191005
  Serious: Yes (Hospitalization, Other)
  Sender: FDA-Public Use
  Company Number: AU-MYLANLABS-2019M1080096

PATIENT
  Age: 37 Year
  Sex: Male

DRUGS (1)
  1. CLOZARIL [Suspect]
     Active Substance: CLOZAPINE
     Indication: SCHIZOPHRENIA
     Dosage: 475 MILLIGRAM
     Route: 048
     Dates: start: 19990813

REACTIONS (6)
  - General physical condition abnormal [Unknown]
  - Haematuria [Unknown]
  - Schizophrenia [Unknown]
  - Suicide attempt [Unknown]
  - Pulmonary embolism [Unknown]
  - Stab wound [Unknown]

NARRATIVE: CASE EVENT DATE: 2019
